FAERS Safety Report 12818463 (Version 1)
Quarter: 2016Q4

REPORT INFORMATION
  Report Type: Spontaneous
  Country: US (occurrence: US)
  Receive Date: 20161005
  Receipt Date: 20161005
  Transmission Date: 20170207
  Serious: Yes (Hospitalization, Other)
  Sender: FDA-Public Use
  Company Number: US-BAXTER-2016BAX045293

PATIENT
  Age: 42 Year
  Sex: Male
  Weight: 98.52 kg

DRUGS (11)
  1. LOSARTAN. [Suspect]
     Active Substance: LOSARTAN
     Route: 065
     Dates: start: 20160830
  2. RENAGEL [Concomitant]
     Active Substance: SEVELAMER HYDROCHLORIDE
     Indication: PRODUCT USED FOR UNKNOWN INDICATION
     Route: 065
  3. DIANEAL LOW CALCIUM PERITONEAL DIALYSIS SOLUTION WITH DEXTROSE [Suspect]
     Active Substance: CALCIUM CHLORIDE\DEXTROSE\MAGNESIUM CHLORIDE\SODIUM CHLORIDE\SODIUM LACTATE
     Indication: END STAGE RENAL DISEASE
     Route: 033
     Dates: start: 20160129, end: 20160819
  4. LISINOPRIL. [Suspect]
     Active Substance: LISINOPRIL
     Indication: BLOOD PRESSURE MANAGEMENT
     Route: 065
     Dates: start: 20160830
  5. CARVEDILOL. [Suspect]
     Active Substance: CARVEDILOL
     Route: 065
     Dates: start: 20160830
  6. DIANEAL LOW CALCIUM PERITONEAL DIALYSIS SOLUTION WITH DEXTROSE [Suspect]
     Active Substance: CALCIUM CHLORIDE\DEXTROSE\MAGNESIUM CHLORIDE\SODIUM CHLORIDE\SODIUM LACTATE
     Indication: END STAGE RENAL DISEASE
     Route: 033
     Dates: start: 20160129, end: 20160819
  7. LOSARTAN. [Suspect]
     Active Substance: LOSARTAN
     Indication: BLOOD PRESSURE MANAGEMENT
     Route: 065
     Dates: start: 20160830
  8. IMDUR [Suspect]
     Active Substance: ISOSORBIDE MONONITRATE
     Indication: BLOOD PRESSURE MANAGEMENT
     Route: 065
     Dates: start: 20160830
  9. DIANEAL LOW CALCIUM PERITONEAL DIALYSIS SOLUTION WITH DEXTROSE [Suspect]
     Active Substance: CALCIUM CHLORIDE\DEXTROSE\MAGNESIUM CHLORIDE\SODIUM CHLORIDE\SODIUM LACTATE
     Indication: END STAGE RENAL DISEASE
     Route: 033
     Dates: start: 20160129, end: 20160819
  10. IMDUR [Suspect]
     Active Substance: ISOSORBIDE MONONITRATE
     Route: 065
     Dates: start: 20160830
  11. CARVEDILOL. [Suspect]
     Active Substance: CARVEDILOL
     Indication: BLOOD PRESSURE MANAGEMENT
     Route: 065
     Dates: start: 20160830

REACTIONS (7)
  - Peritonitis [Unknown]
  - Device related infection [Unknown]
  - Hypotension [Recovered/Resolved]
  - Blood pressure systolic increased [Recovered/Resolved]
  - Cough [Unknown]
  - Peritonitis [Unknown]
  - Peritonitis bacterial [Unknown]

NARRATIVE: CASE EVENT DATE: 2016
